FAERS Safety Report 8434658-7 (Version None)
Quarter: 2012Q2

REPORT INFORMATION
  Report Type: 
  Country: None (occurrence: None)
  Receive Date: 20120323
  Receipt Date: 20110920
  Transmission Date: 20120825
  Serious: Yes (Hospitalization)
  Sender: FDA-Public Use
  Company Number: 163-21880-11061198

PATIENT
  Age: 58 Year
  Sex: Female
  Weight: 105.2345 kg

DRUGS (7)
  1. LENALIDOMIDE [Suspect]
     Indication: MULTIPLE MYELOMA
     Dosage: 25 MG, QD ON DAYS 1-14, PO 10 MG, 1 IN 1 D, PO 10 MG, 1 IN 1 D, PO
     Route: 048
     Dates: start: 20110101, end: 20110215
  2. LENALIDOMIDE [Suspect]
     Indication: MULTIPLE MYELOMA
     Dosage: 25 MG, QD ON DAYS 1-14, PO 10 MG, 1 IN 1 D, PO 10 MG, 1 IN 1 D, PO
     Route: 048
     Dates: start: 20100504
  3. LENALIDOMIDE [Suspect]
     Indication: MULTIPLE MYELOMA
     Dosage: 25 MG, QD ON DAYS 1-14, PO 10 MG, 1 IN 1 D, PO 10 MG, 1 IN 1 D, PO
     Route: 048
     Dates: start: 20110415
  4. LEVOTHYROXINE SODIUM [Concomitant]
  5. ZOMETA [Concomitant]
  6. ASPIRIN [Concomitant]
  7. BORTEZOMIB [Concomitant]

REACTIONS (2)
  - WHITE BLOOD CELL COUNT DECREASED [None]
  - PNEUMONIA [None]
